FAERS Safety Report 7084168-7 (Version None)
Quarter: 2010Q4

REPORT INFORMATION
  Report Type: 
  Country: None (occurrence: None)
  Receive Date: 20101104
  Receipt Date: 20101026
  Transmission Date: 20110411
  Serious: Yes (Other)
  Sender: FDA-Public Use
  Company Number: FR-BAYER-201044036GPV

PATIENT

DRUGS (1)
  1. SORAFENIB [Suspect]
     Route: 048

REACTIONS (1)
  - ATRIAL FIBRILLATION [None]
